FAERS Safety Report 5261805-0 (Version None)
Quarter: 2007Q1

REPORT INFORMATION
  Report Type: 
  Country: None (occurrence: None)
  Receive Date: 20070310
  Receipt Date: 20070228
  Transmission Date: 20070707
  Serious: Yes (Hospitalization)
  Sender: FDA-Public Use
  Company Number: 2006UW19550

PATIENT
  Age: 15617 Day
  Sex: Female
  Weight: 122.7 kg

DRUGS (8)
  1. SEROQUEL [Suspect]
     Indication: INSOMNIA
     Route: 048
     Dates: start: 19990101
  2. SEROQUEL [Suspect]
     Route: 048
     Dates: start: 20060601
  3. ABILIFY [Concomitant]
  4. CLOZARIL [Concomitant]
  5. NAVANE [Concomitant]
  6. THORAZINE [Concomitant]
  7. ZYPREXA [Concomitant]
  8. TRAZODONE HCL [Concomitant]

REACTIONS (4)
  - DIABETES MELLITUS [None]
  - HYPOKALAEMIA [None]
  - ILEUS [None]
  - SMALL INTESTINAL OBSTRUCTION [None]
